FAERS Safety Report 12993130 (Version 1)
Quarter: 2016Q4

REPORT INFORMATION
  Report Type: Spontaneous
  Country: US (occurrence: US)
  Receive Date: 20161202
  Receipt Date: 20161202
  Transmission Date: 20170207
  Serious: No
  Sender: FDA-Public Use
  Company Number: US-LEO PHARMA-244931

PATIENT
  Age: 47 Year
  Sex: Male

DRUGS (1)
  1. PICATO [Suspect]
     Active Substance: INGENOL MEBUTATE
     Indication: ACTINIC KERATOSIS
     Route: 061
     Dates: start: 20161119, end: 20161121

REACTIONS (2)
  - Drug administered at inappropriate site [Unknown]
  - Application site scab [Not Recovered/Not Resolved]

NARRATIVE: CASE EVENT DATE: 20161122
